FAERS Safety Report 9405336 (Version 3)
Quarter: 2013Q3

REPORT INFORMATION
  Report Type: Spontaneous
  Country: IT (occurrence: IT)
  Receive Date: 20130717
  Receipt Date: 20130801
  Transmission Date: 20140515
  Serious: Yes (Hospitalization)
  Sender: FDA-Public Use
  Company Number: IT-JNJFOC-20130706535

PATIENT
  Age: 44 Year
  Sex: Male
  Weight: 70 kg

DRUGS (2)
  1. INFLIXIMAB, RECOMBINANT [Suspect]
     Indication: SPONDYLITIS
     Route: 042
     Dates: start: 20130516, end: 20130617
  2. INFLIXIMAB, RECOMBINANT [Suspect]
     Indication: SPONDYLITIS
     Route: 042
     Dates: start: 20070405

REACTIONS (2)
  - Lymphoma [Not Recovered/Not Resolved]
  - Pleural effusion [Unknown]
